FAERS Safety Report 13772064 (Version 3)
Quarter: 2017Q4

REPORT INFORMATION
  Report Type: Spontaneous
  Country: GB (occurrence: GB)
  Receive Date: 20170720
  Receipt Date: 20171031
  Transmission Date: 20180320
  Serious: Yes (Other)
  Sender: FDA-Public Use
  Company Number: GB-JNJFOC-20170713269

PATIENT
  Age: 50 Year
  Sex: Male
  Weight: 141 kg

DRUGS (11)
  1. CANAGLIFLOZIN [Suspect]
     Active Substance: CANAGLIFLOZIN
     Indication: PRODUCT USED FOR UNKNOWN INDICATION
     Dosage: 300 (DOSE)
     Route: 048
     Dates: start: 20170208, end: 20170523
  2. METFORMIN [Concomitant]
     Active Substance: METFORMIN HYDROCHLORIDE
     Route: 065
     Dates: start: 20160831
  3. NICORANDIL [Concomitant]
     Active Substance: NICORANDIL
     Route: 065
     Dates: start: 20161025
  4. AMLODIPINE [Concomitant]
     Active Substance: AMLODIPINE BESYLATE
     Route: 065
     Dates: start: 20170118
  5. ATENOLOL. [Concomitant]
     Active Substance: ATENOLOL
     Dosage: 1 DOSE
     Route: 065
     Dates: start: 20160831
  6. GLYCERYL TRINITRATE [Concomitant]
     Active Substance: NITROGLYCERIN
     Dosage: 1 DOSE
     Route: 055
     Dates: start: 20160831
  7. CANAGLIFLOZIN [Suspect]
     Active Substance: CANAGLIFLOZIN
     Indication: PRODUCT USED FOR UNKNOWN INDICATION
     Dosage: 100 (DOSE)
     Route: 048
     Dates: start: 201612, end: 20170207
  8. ASPIRIN. [Concomitant]
     Active Substance: ASPIRIN
     Route: 065
     Dates: start: 20160831
  9. GLIMEPIRIDE. [Concomitant]
     Active Substance: GLIMEPIRIDE
     Route: 065
     Dates: start: 201612
  10. ATORVASTATIN [Concomitant]
     Active Substance: ATORVASTATIN
     Dosage: 1 DOSE
     Route: 065
     Dates: start: 20161004
  11. RAMIPRIL. [Concomitant]
     Active Substance: RAMIPRIL
     Route: 065
     Dates: start: 20160831

REACTIONS (2)
  - Blood glucose increased [Recovering/Resolving]
  - Urine ketone body present [Recovering/Resolving]

NARRATIVE: CASE EVENT DATE: 20170523
